FAERS Safety Report 21861802 (Version 2)
Quarter: 2023Q2

REPORT INFORMATION
  Report Type: Spontaneous
  Country: US (occurrence: US)
  Receive Date: 20230113
  Receipt Date: 20230523
  Transmission Date: 20230721
  Serious: Yes (Other)
  Sender: FDA-Public Use
  Company Number: US-TEVA-2023-US-2844739

PATIENT
  Age: 51 Year
  Sex: Female

DRUGS (5)
  1. AJOVY [Suspect]
     Active Substance: FREMANEZUMAB-VFRM
     Indication: Migraine
     Dosage: 225MG/1.5,EVERY 28 DAYS
     Route: 065
     Dates: start: 20010101
  2. AJOVY [Suspect]
     Active Substance: FREMANEZUMAB-VFRM
  3. TREMFYA [Concomitant]
     Active Substance: GUSELKUMAB
     Indication: Psoriatic arthropathy
     Dates: start: 20200101
  4. TREMFYA [Concomitant]
     Active Substance: GUSELKUMAB
     Indication: Psoriasis
  5. LOVENOX [Concomitant]
     Active Substance: ENOXAPARIN SODIUM
     Indication: Postoperative hypercoagulability
     Dates: start: 20221214

REACTIONS (7)
  - Near death experience [Unknown]
  - Blood potassium decreased [Unknown]
  - Blood magnesium decreased [Unknown]
  - Blood calcium decreased [Unknown]
  - Vomiting [Unknown]
  - Dehydration [Unknown]
  - Product dose omission issue [Unknown]
